FAERS Safety Report 6828477-2 (Version None)
Quarter: 2010Q3

REPORT INFORMATION
  Report Type: 
  Country: None (occurrence: None)
  Receive Date: 20100709
  Receipt Date: 20070209
  Transmission Date: 20110219
  Serious: No
  Sender: FDA-Public Use
  Company Number: US-PFIZER INC-2007011383

PATIENT
  Sex: Female
  Weight: 72.57 kg

DRUGS (9)
  1. CHANTIX [Suspect]
     Indication: SMOKING CESSATION THERAPY
     Route: 048
     Dates: start: 20070101
  2. VALPROATE SODIUM [Concomitant]
     Indication: BIPOLAR DISORDER
  3. TEMAZEPAM [Concomitant]
  4. LORAZEPAM [Concomitant]
  5. PREMPRO [Concomitant]
  6. FLUTICASONE [Concomitant]
  7. TIZANIDINE HCL [Concomitant]
     Indication: MUSCLE TIGHTNESS
  8. GUAIFENEX PSE [Concomitant]
  9. ACETAMINOPHEN W/ CODEINE [Concomitant]

REACTIONS (6)
  - ABNORMAL BEHAVIOUR [None]
  - ABNORMAL DREAMS [None]
  - AGITATION [None]
  - INSOMNIA [None]
  - LUNG DISORDER [None]
  - NAUSEA [None]
